FAERS Safety Report 6974739-8 (Version None)
Quarter: 2010Q3

REPORT INFORMATION
  Report Type: 
  Country: None (occurrence: None)
  Receive Date: 20100824
  Receipt Date: 20100524
  Transmission Date: 20110219
  Serious: No
  Sender: FDA-Public Use
  Company Number: 309489

PATIENT
  Age: 68 Year
  Sex: Male

DRUGS (3)
  1. VICTOZA [Suspect]
     Indication: TYPE 2 DIABETES MELLITUS
     Dosage: 0.6 MG QD SUBCUTANEOUS
     Route: 058
     Dates: start: 20100518
  2. NIASPAN [Suspect]
     Indication: BLOOD CHOLESTEROL INCREASED
     Dosage: 1500 MG QD ORAL; 1000 MG QD ORAL
     Route: 048
  3. VITAMIN D [Concomitant]

REACTIONS (1)
  - URTICARIA [None]
